FAERS Safety Report 7201053-8 (Version None)
Quarter: 2010Q4

REPORT INFORMATION
  Report Type: 
  Country: None (occurrence: None)
  Receive Date: 20101229
  Receipt Date: 20101220
  Transmission Date: 20110411
  Serious: Yes (Other)
  Sender: FDA-Public Use
  Company Number: US-BIOGENIDEC-2010BI044444

PATIENT
  Age: 38 Year
  Sex: Female
  Weight: 61 kg

DRUGS (5)
  1. TYSABRI [Suspect]
     Indication: MULTIPLE SCLEROSIS
     Route: 042
     Dates: start: 20100924
  2. SEROQUEL [Concomitant]
     Indication: INSOMNIA
  3. BACTRIM [Concomitant]
     Indication: ACNE
  4. THYROID MEDICATION (NOS) [Concomitant]
     Indication: HYPOTHYROIDISM
  5. FIORICET [Concomitant]
     Indication: HEADACHE

REACTIONS (7)
  - BURNING SENSATION [None]
  - CHROMATURIA [None]
  - CONVULSION [None]
  - MUSCLE SPASMS [None]
  - RASH ERYTHEMATOUS [None]
  - RASH PRURITIC [None]
  - SMEAR CERVIX ABNORMAL [None]
